FAERS Safety Report 8391288-3 (Version None)
Quarter: 2012Q2

REPORT INFORMATION
  Report Type: 
  Country: None (occurrence: None)
  Receive Date: 20120529
  Receipt Date: 20120518
  Transmission Date: 20120825
  Serious: Yes (Other)
  Sender: FDA-Public Use
  Company Number: US-JNJFOC-20110904020

PATIENT
  Sex: Female

DRUGS (2)
  1. LEVAQUIN [Suspect]
     Indication: URINARY TRACT INFECTION
     Route: 048
     Dates: start: 20050501
  2. DITROPAN [Concomitant]
     Indication: NEUROGENIC BLADDER
     Route: 065

REACTIONS (16)
  - TENOSYNOVITIS [None]
  - INSOMNIA [None]
  - PANIC ATTACK [None]
  - TENDONITIS [None]
  - CONSTIPATION [None]
  - TOOTH DISORDER [None]
  - BLOOD GLUCOSE DECREASED [None]
  - MYOCLONUS [None]
  - TRISMUS [None]
  - WHITE BLOOD CELL COUNT INCREASED [None]
  - JOINT INJURY [None]
  - THYROID DISORDER [None]
  - HEART RATE IRREGULAR [None]
  - HYPOAESTHESIA [None]
  - ANXIETY [None]
  - ROTATOR CUFF SYNDROME [None]
